FAERS Safety Report 6342122-4 (Version None)
Quarter: 2009Q3

REPORT INFORMATION
  Report Type: 
  Country: None (occurrence: None)
  Receive Date: 20090903
  Receipt Date: 20090903
  Transmission Date: 20100115
  Serious: Yes (Other)
  Sender: FDA-Public Use
  Company Number: None

PATIENT
  Age: 78 Year
  Sex: Female
  Weight: 68.0396 kg

DRUGS (1)
  1. CEPHALEXIN [Suspect]
     Indication: ARTHRITIS INFECTIVE
     Dosage: ONE CAPSULE 4X DAILY
     Dates: start: 20090811, end: 20090813

REACTIONS (6)
  - ALOPECIA [None]
  - DYSPNOEA [None]
  - FATIGUE [None]
  - SOMNOLENCE [None]
  - VULVOVAGINAL BURNING SENSATION [None]
  - VULVOVAGINAL PRURITUS [None]
